FAERS Safety Report 22676687 (Version 2)
Quarter: 2023Q4

REPORT INFORMATION
  Report Type: Report from Study
  Country: DE (occurrence: DE)
  Receive Date: 20230706
  Receipt Date: 20231218
  Transmission Date: 20240110
  Serious: Yes (Death)
  Sender: FDA-Public Use
  Company Number: DE-PFIZER INC-202300237226

PATIENT
  Age: 66 Year
  Sex: Male

DRUGS (21)
  1. IDARUBICIN HYDROCHLORIDE [Suspect]
     Active Substance: IDARUBICIN HYDROCHLORIDE
     Indication: Angioimmunoblastic T-cell lymphoma
     Dosage: TEPIP, ONCE DAILY ON DAYS 5-7 EVERY 28 DAYS, 24 CYCLES
     Route: 048
  2. DOXORUBICIN HYDROCHLORIDE [Suspect]
     Active Substance: DOXORUBICIN HYDROCHLORIDE
     Indication: Angioimmunoblastic T-cell lymphoma
     Dosage: CHOP, 5 COURSES
  3. CARBOPLATIN [Suspect]
     Active Substance: CARBOPLATIN
     Indication: Angioimmunoblastic T-cell lymphoma
     Dosage: DHAC, 1 COURSE
  4. GEMCITABINE HYDROCHLORIDE [Suspect]
     Active Substance: GEMCITABINE HYDROCHLORIDE
     Indication: Angioimmunoblastic T-cell lymphoma
     Dosage: 2 COURSES
  5. OXALIPLATIN [Suspect]
     Active Substance: OXALIPLATIN
     Indication: Angioimmunoblastic T-cell lymphoma
     Dosage: 2 COURSES
  6. TROFOSFAMIDE [Suspect]
     Active Substance: TROFOSFAMIDE
     Indication: Angioimmunoblastic T-cell lymphoma
     Dosage: TEPIP, 3 TIMES PER DAY ON DAYS 1-7 EVERY 28 DAYS, 24 CYCLES
     Route: 048
  7. ETOPOSIDE [Suspect]
     Active Substance: ETOPOSIDE
     Indication: Angioimmunoblastic T-cell lymphoma
     Dosage: BEAM, HD CHEMOTHERAPY
  8. ETOPOSIDE [Suspect]
     Active Substance: ETOPOSIDE
     Dosage: TEPIP, ONCE DAILY ON DAYS 1-7 EVERY 28 DAYS, 24 CYCLES
     Route: 048
  9. PROCARBAZINE [Suspect]
     Active Substance: PROCARBAZINE
     Indication: Angioimmunoblastic T-cell lymphoma
     Dosage: TEPIP, ONCE DAILY ON DAYS 1-7 EVERY 28 DAYS, 24 CYCLES
     Route: 048
  10. PREDNISOLONE [Suspect]
     Active Substance: PREDNISOLONE
     Indication: Angioimmunoblastic T-cell lymphoma
     Dosage: CHOP, 5 COURSES
  11. PREDNISOLONE [Suspect]
     Active Substance: PREDNISOLONE
     Dosage: TEPIP, ONCE DAILY ON DAYS 1-7 EVERY 28 DAYS, 24 CYCLES
     Route: 048
  12. CYCLOPHOSPHAMIDE [Suspect]
     Active Substance: CYCLOPHOSPHAMIDE
     Indication: Angioimmunoblastic T-cell lymphoma
     Dosage: CHOP, 5 COURSES
  13. VINCRISTINE [Suspect]
     Active Substance: VINCRISTINE
     Indication: Angioimmunoblastic T-cell lymphoma
     Dosage: CHOP, 5 COURSES
  14. DEXAMETHASONE [Suspect]
     Active Substance: DEXAMETHASONE
     Indication: Angioimmunoblastic T-cell lymphoma
     Dosage: DHAP, 1 COURSE
  15. DEXAMETHASONE [Suspect]
     Active Substance: DEXAMETHASONE
     Dosage: DHAC, 1 COURSE
  16. CYTARABINE [Suspect]
     Active Substance: CYTARABINE
     Indication: Angioimmunoblastic T-cell lymphoma
     Dosage: DHAP, 1 COURSE
  17. CYTARABINE [Suspect]
     Active Substance: CYTARABINE
     Dosage: DHAC, 1 COURSE
  18. CYTARABINE [Suspect]
     Active Substance: CYTARABINE
     Dosage: BEAM, HD CHEMOTHERAPY
  19. CISPLATIN [Suspect]
     Active Substance: CISPLATIN
     Indication: Angioimmunoblastic T-cell lymphoma
     Dosage: DHAP, 1 COURSE
  20. BICNU [Suspect]
     Active Substance: CARMUSTINE
     Indication: Angioimmunoblastic T-cell lymphoma
     Dosage: BEAM, HD CHEMOTHERAPY
  21. MELPHALAN [Suspect]
     Active Substance: MELPHALAN
     Indication: Angioimmunoblastic T-cell lymphoma
     Dosage: BEAM, HD CHEMOTHERAPY

REACTIONS (3)
  - Second primary malignancy [Fatal]
  - Acute myeloid leukaemia [Fatal]
  - Myelodysplastic syndrome [Fatal]
